FAERS Safety Report 5511728-4 (Version None)
Quarter: 2007Q4

REPORT INFORMATION
  Report Type: 
  Country: None (occurrence: None)
  Receive Date: 20071109
  Receipt Date: 20071030
  Transmission Date: 20080405
  Serious: Yes (Death, Other)
  Sender: FDA-Public Use
  Company Number: FR-PFIZER INC-2007091385

PATIENT
  Age: 84 Year
  Sex: Female

DRUGS (1)
  1. VORICONAZOLE [Suspect]
     Route: 042

REACTIONS (7)
  - AMPUTATION [None]
  - DRUG ADMINISTRATION ERROR [None]
  - FRACTURE [None]
  - LOSS OF CONSCIOUSNESS [None]
  - OSTEOARTHRITIS [None]
  - OSTEOLYSIS [None]
  - OSTEOMYELITIS [None]
